FAERS Safety Report 9526432 (Version 1)
Quarter: 2013Q3

REPORT INFORMATION
  Report Type: Spontaneous
  Country: TW (occurrence: TW)
  Receive Date: 20130916
  Receipt Date: 20130916
  Transmission Date: 20140515
  Serious: Yes (Other)
  Sender: FDA-Public Use
  Company Number: TW-TAKEDA-2013TUS000547

PATIENT
  Age: 64 Year
  Sex: Male

DRUGS (1)
  1. FEBURIC [Suspect]
     Indication: GOUT
     Dosage: 40 MG, QD
     Route: 048
     Dates: start: 201308, end: 2013

REACTIONS (1)
  - Renal failure acute [Recovered/Resolved]
